FAERS Safety Report 17840371 (Version 1)
Quarter: 2020Q2

REPORT INFORMATION
  Report Type: Spontaneous
  Country: BR (occurrence: BR)
  Receive Date: 20200529
  Receipt Date: 20200529
  Transmission Date: 20200714
  Serious: Yes (Other)
  Sender: FDA-Public Use
  Company Number: BR-AMGEN-BRASP2017120506

PATIENT
  Age: 45 Year
  Sex: Female

DRUGS (6)
  1. DEFLAZACORT [Concomitant]
     Active Substance: DEFLAZACORT
     Dosage: UNK
     Dates: start: 2011
  2. ENBREL [Suspect]
     Active Substance: ETANERCEPT
     Dosage: 50 MG, WEEKLY (EVERY MONDAY)
     Route: 065
     Dates: end: 2018
  3. ATENOLOL. [Concomitant]
     Active Substance: ATENOLOL
     Dosage: UNK
     Dates: start: 2012
  4. PARACETAMOL [Concomitant]
     Active Substance: ACETAMINOPHEN
     Dosage: UNK
     Dates: start: 2012
  5. FLANCOX [Concomitant]
     Active Substance: ETODOLAC
     Dosage: UNK
     Dates: start: 2015
  6. ENBREL [Suspect]
     Active Substance: ETANERCEPT
     Indication: RHEUMATIC DISORDER
     Dosage: 50 MG, WEEKLY (EVERY MONDAY)
     Route: 065
     Dates: start: 201708

REACTIONS (9)
  - Rheumatoid arthritis [Unknown]
  - Fibromyalgia [Unknown]
  - Menstrual disorder [Unknown]
  - Disease recurrence [Not Recovered/Not Resolved]
  - Bone disorder [Unknown]
  - Swelling [Not Recovered/Not Resolved]
  - Hormone level abnormal [Unknown]
  - Drug ineffective [Unknown]
  - Feeling abnormal [Unknown]

NARRATIVE: CASE EVENT DATE: 201708
